FAERS Safety Report 16309265 (Version 1)
Quarter: 2020Q3

REPORT INFORMATION
  Report Type: Spontaneous
  Country: US (occurrence: US)
  Receive Date: 20190514
  Receipt Date: 20190514
  Transmission Date: 20201104
  Serious: Yes (Hospitalization)
  Sender: FDA-Public Use
  Company Number: US-HIKMA PHARMACEUTICALS USA INC.-US-H14001-19-02977

PATIENT
  Age: 59 Year
  Sex: Male
  Weight: 54 kg

DRUGS (4)
  1. LEUCOVORIN. [Suspect]
     Active Substance: LEUCOVORIN
     Indication: METASTATIC GASTRIC CANCER
     Route: 042
     Dates: start: 20181217
  2. ZOLBETUXIMAB. [Suspect]
     Active Substance: ZOLBETUXIMAB
     Indication: METASTATIC GASTRIC CANCER
     Route: 042
     Dates: start: 20181217
  3. FLUOROURACIL. [Suspect]
     Active Substance: FLUOROURACIL
     Indication: METASTATIC GASTRIC CANCER
     Route: 042
     Dates: start: 20181217
  4. OXALIPLATIN. [Suspect]
     Active Substance: OXALIPLATIN
     Indication: METASTATIC GASTRIC CANCER
     Route: 042
     Dates: start: 20181217

REACTIONS (1)
  - Transient ischaemic attack [Not Recovered/Not Resolved]

NARRATIVE: CASE EVENT DATE: 201904
